FAERS Safety Report 8707198 (Version 2)
Quarter: 2012Q4

REPORT INFORMATION
  Report Type: 
  Country: DK (occurrence: FR)
  Receive Date: 20120803
  Receipt Date: 20121018
  Transmission Date: 20130627
  Serious: Yes (Other)
  Sender: FDA-Public Use
  Company Number: FR-FRI-1000037618

PATIENT
  Age: 43 Year
  Sex: Male

DRUGS (6)
  1. ESCITALOPRAM [Suspect]
     Indication: DEPRESSION
     Dosage: 20 mg
  2. ZOLPIDEM [Concomitant]
     Dosage: 10 mg
  3. PARKINANE [Concomitant]
     Dosage: 5 mg
  4. BROMAZEPAM [Concomitant]
     Dosage: 6 mg
  5. EFFERALGAN [Concomitant]
     Dosage: 1 gram
  6. ABILIFY [Concomitant]
     Dates: end: 201207

REACTIONS (8)
  - Skin haemorrhage [Recovered/Resolved]
  - Agitation [Recovered/Resolved]
  - Increased appetite [Recovered/Resolved]
  - Tremor [Recovered/Resolved]
  - Initial insomnia [Recovered/Resolved]
  - Hallucination [Recovered/Resolved]
  - Myalgia [Recovered/Resolved]
  - Fatigue [Recovered/Resolved]
